FAERS Safety Report 6451107-9 (Version None)
Quarter: 2009Q4

REPORT INFORMATION
  Report Type: 
  Country: None (occurrence: None)
  Receive Date: 20091123
  Receipt Date: 20091112
  Transmission Date: 20100525
  Serious: Yes (Hospitalization)
  Sender: FDA-Public Use
  Company Number: PT-JNJFOC-20090803876

PATIENT
  Sex: Male
  Weight: 47 kg

DRUGS (4)
  1. PREZISTA [Suspect]
     Indication: HIV INFECTION
     Route: 048
     Dates: start: 20090710, end: 20090727
  2. RITONAVIR [Suspect]
     Indication: HIV INFECTION
     Route: 048
     Dates: start: 20090710, end: 20090727
  3. KIVEXA [Suspect]
     Indication: HIV INFECTION
     Route: 048
     Dates: start: 20090710, end: 20090727
  4. COTRIMOXAZOLE [Concomitant]
     Indication: OPPORTUNISTIC INFECTION
     Route: 048

REACTIONS (2)
  - CHOLESTASIS [None]
  - TOXIC SKIN ERUPTION [None]
